FAERS Safety Report 10457081 (Version 1)
Quarter: 2014Q3

REPORT INFORMATION
  Report Type: Spontaneous
  Country: US (occurrence: None)
  Receive Date: 20140915
  Receipt Date: 20140915
  Transmission Date: 20150326
  Serious: Yes (Life-Threatening, Disabling, Other)
  Sender: FDA-Public Use
  Company Number: None

PATIENT
  Age: 61 Year
  Sex: Female
  Weight: 55.34 kg

DRUGS (4)
  1. MONTELUKAST [Suspect]
     Active Substance: MONTELUKAST SODIUM
     Indication: ASTHMA
     Dosage: 10 MG 90CT., 1 TABLET, DAILY, BY MOUTH
     Route: 048
     Dates: start: 20140827, end: 20140908
  2. IBUPROFEN. [Concomitant]
     Active Substance: IBUPROFEN
  3. ACETOMINOPHEN [Concomitant]
  4. GOSAMINE SUPPLEMENT [Concomitant]

REACTIONS (9)
  - Mental disorder [None]
  - Psychomotor hyperactivity [None]
  - Unevaluable event [None]
  - Depression [None]
  - Anxiety [None]
  - Irritability [None]
  - Product substitution issue [None]
  - Product quality issue [None]
  - Inferiority complex [None]

NARRATIVE: CASE EVENT DATE: 20140905
